FAERS Safety Report 23836385 (Version 7)
Quarter: 2025Q1

REPORT INFORMATION
  Report Type: Spontaneous
  Country: CA (occurrence: CA)
  Receive Date: 20240509
  Receipt Date: 20250211
  Transmission Date: 20250409
  Serious: Yes (Other)
  Sender: PFIZER
  Company Number: CA-PFIZER INC-202400042686

PATIENT
  Age: 61 Year
  Sex: Female
  Weight: 57.5 kg

DRUGS (10)
  1. RUXIENCE [Suspect]
     Active Substance: RITUXIMAB-PVVR
     Indication: Granulomatosis with polyangiitis
     Dates: start: 202401
  2. RUXIENCE [Suspect]
     Active Substance: RITUXIMAB-PVVR
     Indication: Microscopic polyangiitis
     Route: 042
     Dates: start: 20240209
  3. RUXIENCE [Suspect]
     Active Substance: RITUXIMAB-PVVR
     Route: 042
     Dates: start: 20240222, end: 20240222
  4. RUXIENCE [Suspect]
     Active Substance: RITUXIMAB-PVVR
     Route: 042
     Dates: start: 20240704
  5. AVACOPAN [Concomitant]
     Active Substance: AVACOPAN
     Dates: start: 202402
  6. PREDNISONE [Concomitant]
     Active Substance: PREDNISONE
     Dosage: 60 MG, DAILY (SHE IS STILL ON PDN 60MG OD)
     Route: 048
  7. PREDNISONE [Concomitant]
     Active Substance: PREDNISONE
  8. PREGABALIN [Concomitant]
     Active Substance: PREGABALIN
  9. ARTEMETHER\LUMEFANTRINE [Concomitant]
     Active Substance: ARTEMETHER\LUMEFANTRINE
  10. TAVNEOS [Concomitant]
     Active Substance: AVACOPAN

REACTIONS (16)
  - Neuropathy peripheral [Unknown]
  - Kidney infection [Unknown]
  - Ischaemia [Unknown]
  - Therapeutic product effect incomplete [Unknown]
  - Thirst [Unknown]
  - Paraesthesia [Not Recovered/Not Resolved]
  - Burning sensation [Unknown]
  - Hypertension [Unknown]
  - Arteriogram abnormal [Unknown]
  - Pulmonary hilum mass [Unknown]
  - Pyrexia [Recovered/Resolved]
  - Night sweats [Recovered/Resolved]
  - Weight decreased [Recovered/Resolved]
  - Laryngeal mass [Unknown]
  - Condition aggravated [Not Recovered/Not Resolved]
  - Off label use [Unknown]

NARRATIVE: CASE EVENT DATE: 20240101
